FAERS Safety Report 5241602-2 (Version None)
Quarter: 2007Q1

REPORT INFORMATION
  Report Type: 
  Country: None (occurrence: None)
  Receive Date: 20061208
  Receipt Date: 20050812
  Transmission Date: 20070707
  Serious: Yes (Other)
  Sender: FDA-Public Use
  Company Number: 2005UW12036

PATIENT
  Age: 77 Year
  Sex: Female
  Weight: 76.657 kg

DRUGS (7)
  1. CRESTOR [Suspect]
     Indication: BLOOD CHOLESTEROL INCREASED
     Dosage: 5 MG QOD PO
     Route: 048
  2. PLAVIX [Concomitant]
  3. NORVASC [Concomitant]
  4. COZAAR [Concomitant]
  5. ISOSORBIDE [Concomitant]
  6. TENORMIN [Concomitant]
  7. WATER PILLS [Concomitant]

REACTIONS (1)
  - INCREASED TENDENCY TO BRUISE [None]
